FAERS Safety Report 8090674-9 (Version None)
Quarter: 2012Q1

REPORT INFORMATION
  Report Type: 
  Country: None (occurrence: None)
  Receive Date: 20120129
  Receipt Date: 20111207
  Transmission Date: 20120608
  Serious: No
  Sender: FDA-Public Use
  Company Number: US-ABBOTT-11P-163-0881981-00

PATIENT
  Age: 24 Year
  Sex: Male

DRUGS (3)
  1. FLONASE [Concomitant]
     Indication: HYPERSENSITIVITY
  2. VITRON-C [Concomitant]
     Indication: PRODUCT USED FOR UNKNOWN INDICATION
     Dosage: DAILY
  3. HUMIRA [Suspect]
     Indication: COLITIS ULCERATIVE
     Dates: start: 20110801

REACTIONS (11)
  - INJECTION SITE PAIN [None]
  - INJECTION SITE HYPERSENSITIVITY [None]
  - INJECTION SITE WARMTH [None]
  - INJECTION SITE HAEMORRHAGE [None]
  - INJECTION SITE NODULE [None]
  - NERVOUSNESS [None]
  - PRESYNCOPE [None]
  - NAUSEA [None]
  - FEELING ABNORMAL [None]
  - INJECTION SITE ERYTHEMA [None]
  - COLITIS ULCERATIVE [None]
